FAERS Safety Report 6646572-8 (Version None)
Quarter: 2010Q1

REPORT INFORMATION
  Report Type: 
  Country: None (occurrence: None)
  Receive Date: 20100323
  Receipt Date: 20100311
  Transmission Date: 20100710
  Serious: Yes (Disabling)
  Sender: FDA-Public Use
  Company Number: TR-ELI_LILLY_AND_COMPANY-TR201003003908

PATIENT
  Sex: Female

DRUGS (2)
  1. HUMULIN R [Suspect]
     Indication: DIABETES MELLITUS
     Dosage: 10 U, 2/D
     Route: 058
     Dates: start: 20090101
  2. METFORMIN HCL [Concomitant]
     Dosage: UNK, 2/D
     Route: 065

REACTIONS (3)
  - BLINDNESS [None]
  - BLOOD GLUCOSE INCREASED [None]
  - EYE HAEMORRHAGE [None]
